FAERS Safety Report 11803961 (Version 2)
Quarter: 2015Q4

REPORT INFORMATION
  Report Type: Spontaneous
  Country: JP (occurrence: JP)
  Receive Date: 20151204
  Receipt Date: 20151214
  Transmission Date: 20160305
  Serious: Yes (Other)
  Sender: FDA-Public Use
  Company Number: JP-JNJFOC-20151125306

PATIENT
  Sex: Male

DRUGS (2)
  1. RIUP X5 [Suspect]
     Active Substance: MINOXIDIL
     Route: 061
  2. RIUP X5 [Suspect]
     Active Substance: MINOXIDIL
     Indication: ALOPECIA
     Route: 061

REACTIONS (2)
  - Application site discolouration [Recovered/Resolved]
  - Colon cancer [Recovered/Resolved]
